FAERS Safety Report 4561321-5 (Version None)
Quarter: 2005Q1

REPORT INFORMATION
  Report Type: 
  Country: None (occurrence: None)
  Receive Date: 20050121
  Receipt Date: 20041230
  Transmission Date: 20050727
  Serious: Yes (Other)
  Sender: FDA-Public Use
  Company Number: ENTC2004-0253

PATIENT
  Age: 83 Year
  Sex: Female

DRUGS (1)
  1. STALEVO 100 [Suspect]
     Indication: TREMOR
     Dosage: BID
     Route: 048

REACTIONS (4)
  - AGGRESSION [None]
  - AGITATION [None]
  - ANGER [None]
  - SUICIDAL IDEATION [None]
